FAERS Safety Report 8964494 (Version 1)
Quarter: 2012Q4

REPORT INFORMATION
  Report Type: 
  Country: FR (occurrence: FR)
  Receive Date: 20121214
  Receipt Date: 20121214
  Transmission Date: 20130627
  Serious: Yes (Life-Threatening)
  Sender: FDA-Public Use
  Company Number: FR-TEVA-374684ISR

PATIENT
  Sex: Female

DRUGS (8)
  1. CEFTRIAXONE [Suspect]
     Indication: BRONCHITIS
     Dosage: 1 Gram Daily;
     Route: 058
     Dates: start: 20120928, end: 20121003
  2. CEFTRIAXONE [Suspect]
     Dosage: 1 Gram Daily;
     Route: 058
     Dates: start: 20121005, end: 20121008
  3. PARKINANE [Concomitant]
  4. TIMOPTOL [Concomitant]
  5. KALEORID [Concomitant]
  6. RISPERDAL [Concomitant]
  7. DEROXAT [Concomitant]
  8. LASILIX [Concomitant]

REACTIONS (1)
  - Tetanus [Recovering/Resolving]
